FAERS Safety Report 25809069 (Version 1)
Quarter: 2025Q3

REPORT INFORMATION
  Report Type: Spontaneous
  Country: US (occurrence: None)
  Receive Date: 20250916
  Receipt Date: 20250916
  Transmission Date: 20251021
  Serious: Yes (Hospitalization)
  Sender: FDA-CTU
  Company Number: None

PATIENT
  Age: 56 Year
  Sex: Female

DRUGS (1)
  1. CEFTRIAXONE [Suspect]
     Active Substance: CEFTRIAXONE
     Indication: Haematological infection
     Dates: start: 20250821, end: 20250821

REACTIONS (4)
  - Vomiting [None]
  - Agonal respiration [None]
  - Unresponsive to stimuli [None]
  - Cardio-respiratory arrest [None]

NARRATIVE: CASE EVENT DATE: 20250821
